FAERS Safety Report 7657282-2 (Version None)
Quarter: 2011Q3

REPORT INFORMATION
  Report Type: 
  Country: None (occurrence: None)
  Receive Date: 20110804
  Receipt Date: 20110726
  Transmission Date: 20111222
  Serious: Yes (Other)
  Sender: FDA-Public Use
  Company Number: PHHY2011JP69088

PATIENT
  Sex: Female

DRUGS (2)
  1. FEMARA [Suspect]
     Dosage: 2.5 MG, DAILY
     Route: 048
  2. FEMARA [Suspect]
     Dosage: UNK
     Route: 048

REACTIONS (4)
  - GALACTORRHOEA [None]
  - CARDIAC DISORDER [None]
  - ANGINA PECTORIS [None]
  - DYSPNOEA [None]
